FAERS Safety Report 10981586 (Version 2)
Quarter: 2015Q2

REPORT INFORMATION
  Report Type: Spontaneous
  Country: US (occurrence: US)
  Receive Date: 20150402
  Receipt Date: 20150525
  Transmission Date: 20150821
  Serious: No
  Sender: FDA-Public Use
  Company Number: US-JNJFOC-20140702918

PATIENT
  Age: 75 Year
  Sex: Female
  Weight: 94.35 kg

DRUGS (2)
  1. IMODIUM MULTI-SYMPTOM RELIEF [Suspect]
     Active Substance: DIMETHICONE\LOPERAMIDE HYDROCHLORIDE
     Route: 048
  2. IMODIUM MULTI-SYMPTOM RELIEF [Suspect]
     Active Substance: DIMETHICONE\LOPERAMIDE HYDROCHLORIDE
     Indication: DIARRHOEA
     Route: 048

REACTIONS (6)
  - Dysphagia [Recovered/Resolved]
  - Product coating issue [Unknown]
  - Wrong technique in drug usage process [Unknown]
  - Product solubility abnormal [Unknown]
  - Adverse drug reaction [Recovered/Resolved]
  - Choking [Recovered/Resolved]
